FAERS Safety Report 21880884 (Version 3)
Quarter: 2023Q1

REPORT INFORMATION
  Report Type: Report from Study
  Country: AU (occurrence: AU)
  Receive Date: 20230118
  Receipt Date: 20230217
  Transmission Date: 20230418
  Serious: Yes (Hospitalization)
  Sender: FDA-Public Use
  Company Number: AU-SEATTLE GENETICS-2023SGN00004

PATIENT
  Age: 57 Year
  Sex: Female
  Weight: 89.6 kg

DRUGS (22)
  1. TUCATINIB [Suspect]
     Active Substance: TUCATINIB
     Indication: HER2 positive breast cancer
     Dosage: 200 MG, BID
     Route: 048
     Dates: start: 20210111
  2. ADO-TRASTUZUMAB EMTANSINE [Suspect]
     Active Substance: ADO-TRASTUZUMAB EMTANSINE
     Indication: HER2 positive breast cancer
     Dosage: 2.4 MG/KG, EVERY 21-DAY CYCLE
     Route: 042
     Dates: start: 20210111
  3. MAGNESIUM [Concomitant]
     Active Substance: MAGNESIUM
     Indication: Supplementation therapy
     Dosage: UNK
     Route: 061
     Dates: start: 20211015
  4. MAGNESIUM [Concomitant]
     Active Substance: MAGNESIUM
     Dosage: 1000 MG, QD
     Route: 048
     Dates: start: 2017
  5. PHENERGAN [Concomitant]
     Active Substance: PROMETHAZINE HYDROCHLORIDE
     Indication: Pruritus
     Dosage: 10 MG, NOCTE
     Route: 048
     Dates: start: 20211214
  6. CETAPHIL CLEANSERS OILY SKIN [Concomitant]
     Indication: Dry skin
     Dosage: UNK, PRN
     Route: 061
     Dates: start: 20210921
  7. IBUPROFEN [Concomitant]
     Active Substance: IBUPROFEN
     Indication: Arthralgia
     Dosage: 200 MG, PRN
     Route: 048
     Dates: start: 20210915
  8. IBUPROFEN [Concomitant]
     Active Substance: IBUPROFEN
     Indication: Neck pain
     Dosage: 200 MG, PRN
     Route: 048
     Dates: start: 20220620
  9. ACETAMINOPHEN [Concomitant]
     Active Substance: ACETAMINOPHEN
     Indication: Arthralgia
     Dosage: 1 G, PRN
     Route: 048
     Dates: start: 20220616
  10. LEVOTHYROXINE SODIUM [Concomitant]
     Active Substance: LEVOTHYROXINE SODIUM
     Indication: Hypothyroidism
     Dosage: 200 G
     Route: 048
     Dates: start: 20220810
  11. PARADOL [PARACETAMOL] [Concomitant]
     Indication: Headache
     Dosage: 1 G, PRN
     Route: 048
     Dates: start: 20210928
  12. PARADOL [PARACETAMOL] [Concomitant]
     Indication: Neck pain
     Dosage: 1 G, PRN
     Route: 048
     Dates: start: 20221119
  13. VITAMIN D NOS [Concomitant]
     Active Substance: VITAMIN D NOS
     Indication: Supplementation therapy
     Dosage: 300 MG
     Route: 048
     Dates: start: 2016
  14. CANDESARTAN [Concomitant]
     Active Substance: CANDESARTAN
     Indication: Hypertension
     Dosage: 8 MG, QD
     Route: 048
     Dates: start: 2018
  15. PANTOPRAZOLE [Concomitant]
     Active Substance: PANTOPRAZOLE
     Indication: Gastrooesophageal reflux disease
     Dosage: 20 MG
     Route: 048
     Dates: start: 2016
  16. NASONEX [Concomitant]
     Active Substance: MOMETASONE FUROATE
     Indication: Seasonal allergy
     Dosage: 50 ?G/SPRAY
     Dates: start: 20210424
  17. BIOTIN [Concomitant]
     Active Substance: BIOTIN
     Indication: Dry mouth
     Dosage: 1-2 CM, PRN
     Route: 061
     Dates: start: 20210317
  18. FLUOROMETHOLONE [Concomitant]
     Active Substance: FLUOROMETHOLONE
     Indication: Hypersensitivity
     Dosage: 0.1 %, 1-2 DROPS, PRN
     Route: 061
     Dates: start: 20210510
  19. BLACKMORES PROBIOTICS+ DAILY HEALTH [Concomitant]
     Indication: Supplementation therapy
     Dosage: 1 TAB
     Route: 048
     Dates: start: 20210407
  20. THYROXINE [Concomitant]
     Active Substance: LEVOTHYROXINE
  21. ASPIRIN [Concomitant]
     Active Substance: ASPIRIN
  22. METHYLPREDNISOLONE [Concomitant]
     Active Substance: METHYLPREDNISOLONE

REACTIONS (1)
  - Cerebrovascular accident [Recovered/Resolved]

NARRATIVE: CASE EVENT DATE: 20221231
